FAERS Safety Report 24632234 (Version 1)
Quarter: 2024Q4

REPORT INFORMATION
  Report Type: Spontaneous
  Country: US (occurrence: None)
  Receive Date: 20241118
  Receipt Date: 20241118
  Transmission Date: 20250115
  Serious: Yes (Hospitalization)
  Sender: Public
  Company Number: None

PATIENT
  Age: 58 Year
  Sex: Male
  Weight: 60 kg

DRUGS (1)
  1. MORPHINE [Suspect]
     Active Substance: MORPHINE
     Indication: Pain
     Dosage: OTHER FREQUENCY : ONCE;?
     Route: 042
     Dates: start: 20240930, end: 20240930

REACTIONS (5)
  - Agitation [None]
  - Confusional state [None]
  - Respiratory depression [None]
  - Seizure [None]
  - Nonspecific reaction [None]

NARRATIVE: CASE EVENT DATE: 20241001
